FAERS Safety Report 5604058-3 (Version None)
Quarter: 2008Q1

REPORT INFORMATION
  Report Type: 
  Country: None (occurrence: None)
  Receive Date: 20080123
  Receipt Date: 20080123
  Transmission Date: 20080703
  Serious: No
  Sender: FDA-Public Use
  Company Number: None

PATIENT
  Age: 42 Year
  Sex: Female

DRUGS (1)
  1. OMALIZUMAB [Suspect]
     Indication: ASTHMA
     Dosage: 225 MG SQ
     Route: 058
     Dates: start: 20071101, end: 20071204

REACTIONS (7)
  - DEPRESSED LEVEL OF CONSCIOUSNESS [None]
  - FEELING HOT [None]
  - NAUSEA [None]
  - PRURITUS [None]
  - RESPIRATORY DISORDER [None]
  - RESPIRATORY RATE INCREASED [None]
  - THROAT IRRITATION [None]
